FAERS Safety Report 6538602-9 (Version None)
Quarter: 2010Q1

REPORT INFORMATION
  Report Type: 
  Country: None (occurrence: None)
  Receive Date: 20100113
  Receipt Date: 20100113
  Transmission Date: 20100710
  Serious: No
  Sender: FDA-Public Use
  Company Number: None

PATIENT
  Age: 22 Year
  Sex: Male
  Weight: 48.9885 kg

DRUGS (7)
  1. TYLENOL [Suspect]
     Indication: PYREXIA
     Dosage: 650MG Q4 PRN NG
     Dates: start: 20091202, end: 20091210
  2. CEREBYX [Concomitant]
  3. AMBIVET [Concomitant]
  4. LACTULOSE [Concomitant]
  5. PRILOSEC [Concomitant]
  6. VERSED [Concomitant]
  7. BACTROBAN [Concomitant]

REACTIONS (1)
  - HEPATIC ENZYME INCREASED [None]
